FAERS Safety Report 22014570 (Version 5)
Quarter: 2023Q2

REPORT INFORMATION
  Report Type: Spontaneous
  Country: ES (occurrence: ES)
  Receive Date: 20230221
  Receipt Date: 20230529
  Transmission Date: 20230722
  Serious: Yes (Other)
  Sender: FDA-Public Use
  Company Number: ES-Gedeon Richter Plc.-2022_GR_007120

PATIENT
  Age: 69 Year
  Sex: Male
  Weight: 69 kg

DRUGS (24)
  1. PERINDOPRIL [Suspect]
     Active Substance: PERINDOPRIL
     Indication: Hypertension
     Dosage: 1 DOSAGE FORM, ONCE A DAY
     Route: 048
     Dates: end: 2022
  2. PERINDOPRIL [Suspect]
     Active Substance: PERINDOPRIL
     Dosage: 4 MILLIGRAM, ONCE A DAY
     Route: 048
     Dates: end: 2022
  3. TERIPARATIDE [Suspect]
     Active Substance: TERIPARATIDE
     Indication: Bone disorder
     Dosage: 20 MCG, ONCE A DAY
     Route: 058
     Dates: start: 20220510
  4. TERIPARATIDE [Suspect]
     Active Substance: TERIPARATIDE
     Indication: Product use in unapproved indication
  5. ACETYLCYSTEINE [Concomitant]
     Active Substance: ACETYLCYSTEINE
     Indication: Product used for unknown indication
     Dosage: UNK
     Route: 065
  6. FOLIC ACID [Concomitant]
     Active Substance: FOLIC ACID
     Indication: Product used for unknown indication
     Dosage: 1 DOSAGE FORM, ONCE A DAY (1 TABLET/ 24 H)
     Route: 048
  7. ATORVASTATIN [Concomitant]
     Active Substance: ATORVASTATIN
     Indication: Hypercholesterolaemia
     Dosage: 20 MILLIGRAM, ONCE A DAY
     Route: 048
  8. ATORVASTATIN [Concomitant]
     Active Substance: ATORVASTATIN
     Dosage: 1 DOSAGE FORM, ONCE A DAY (1 TABLET/ 24 H)
     Route: 048
  9. AZITHROMYCIN ANHYDROUS [Concomitant]
     Active Substance: AZITHROMYCIN ANHYDROUS
     Indication: Lung disorder
     Dosage: 1 DOSAGE FORM, EVERY OTHER DAY
     Route: 065
  10. CLOPERASTINE [Concomitant]
     Active Substance: CLOPERASTINE
     Indication: Product used for unknown indication
     Dosage: UNK
     Route: 065
  11. PREDNISONE [Concomitant]
     Active Substance: PREDNISONE
     Indication: Product used for unknown indication
     Dosage: UNK
     Route: 065
  12. CALCIFEDIOL [Concomitant]
     Active Substance: CALCIFEDIOL
     Indication: Vitamin supplementation
     Dosage: 1 DOSAGE FORM, ONCE A DAY (1 CAPSULE/ 24 H)
     Route: 048
  13. CALCIUM CARBONATE\CHOLECALCIFEROL [Concomitant]
     Active Substance: CALCIUM CARBONATE\CHOLECALCIFEROL
     Indication: Mineral supplementation
     Dosage: 1 DOSAGE FORM, ONCE A DAY (1 TABLET/ 24 H)
     Route: 048
  14. INDAPAMIDE\PERINDOPRIL [Concomitant]
     Active Substance: INDAPAMIDE\PERINDOPRIL
     Indication: Product used for unknown indication
     Dosage: UNK
     Route: 065
  15. LEVOFLOXACIN [Concomitant]
     Active Substance: LEVOFLOXACIN
     Indication: Product used for unknown indication
     Dosage: UNK
     Route: 065
     Dates: start: 20221013
  16. LYRICA [Concomitant]
     Active Substance: PREGABALIN
     Indication: Neuralgia
     Dosage: 4 DOSAGE FORM, ONCE A DAY (4 TABLETS/ 24 H)
     Route: 048
  17. LYRICA [Concomitant]
     Active Substance: PREGABALIN
     Dosage: 300 MILLIGRAM, ONCE A DAY
     Route: 048
  18. OMEPRAZOLE [Concomitant]
     Active Substance: OMEPRAZOLE
     Indication: Gastrointestinal disorder prophylaxis
     Dosage: 20 MILLIGRAM, ONCE A DAY
     Route: 048
  19. OMEPRAZOLE [Concomitant]
     Active Substance: OMEPRAZOLE
     Dosage: UNK,1 TABLET/ 24 H
     Route: 048
  20. PREGABALIN [Concomitant]
     Active Substance: PREGABALIN
     Indication: Product used for unknown indication
     Dosage: UNK
     Route: 065
  21. ACETAMINOPHEN [Concomitant]
     Active Substance: ACETAMINOPHEN
     Indication: Product used for unknown indication
     Dosage: UNK
     Route: 065
  22. PREDNISONE [Concomitant]
     Active Substance: PREDNISONE
     Indication: Lung disorder
     Dosage: UNK
     Route: 065
  23. TAMSULOSIN [Concomitant]
     Active Substance: TAMSULOSIN
     Indication: Prophylaxis urinary tract infection
     Dosage: 1 DOSAGE FORM, ONCE A DAY (1 TABLET/ 24 H)
     Route: 048
  24. TAMSULOSIN [Concomitant]
     Active Substance: TAMSULOSIN
     Dosage: 0.4 MILLIGRAM, ONCE A DAY
     Route: 048

REACTIONS (16)
  - Hypertension [Unknown]
  - Pneumonia [Recovered/Resolved]
  - Organising pneumonia [Unknown]
  - Hypotension [Recovered/Resolved]
  - Decreased appetite [Recovered/Resolved]
  - Weight decreased [Recovering/Resolving]
  - Tremor [Recovered/Resolved]
  - Blood alkaline phosphatase increased [Recovered/Resolved]
  - White blood cell count increased [Recovered/Resolved]
  - Neutrophil count increased [Recovered/Resolved]
  - Hypocalcaemia [Unknown]
  - Aspartate aminotransferase increased [Unknown]
  - Monocyte percentage increased [Unknown]
  - Mean cell haemoglobin decreased [Unknown]
  - Product use in unapproved indication [Unknown]
  - COVID-19 [Recovering/Resolving]

NARRATIVE: CASE EVENT DATE: 20220101
